FAERS Safety Report 18641088 (Version 1)
Quarter: 2020Q4

REPORT INFORMATION
  Report Type: Spontaneous
  Country: US (occurrence: US)
  Receive Date: 20201221
  Receipt Date: 20201221
  Transmission Date: 20210114
  Serious: Yes (Hospitalization, Other)
  Sender: FDA-Public Use
  Company Number: US-CHEPLA-C20203901

PATIENT
  Age: 75 Year
  Sex: Female

DRUGS (1)
  1. GANCICLOVIR. [Suspect]
     Active Substance: GANCICLOVIR
     Indication: CYTOMEGALOVIRUS PANCREATITIS
     Dosage: 200 MG, BID, EVERY 12 HOURS

REACTIONS (3)
  - Abdominal wound dehiscence [Unknown]
  - Pseudomonas infection [Unknown]
  - Candida infection [Unknown]
